FAERS Safety Report 9210141 (Version 2)
Quarter: 2013Q2

REPORT INFORMATION
  Report Type: Spontaneous
  Country: US (occurrence: US)
  Receive Date: 20130404
  Receipt Date: 20130515
  Transmission Date: 20140414
  Serious: Yes (Other)
  Sender: FDA-Public Use
  Company Number: US-PFIZER INC-2013106102

PATIENT
  Age: 81 Year
  Sex: Female
  Weight: 54.42 kg

DRUGS (5)
  1. DILANTIN [Suspect]
     Indication: PARTIAL SEIZURES
     Dosage: 200MG DAILY ON MONDAY, WEDNESDAY AND FRIDAY AND 250MG DAILY ON REST OF THE DAYS, 1X/DAY
     Dates: start: 1988
  2. CELEBREX [Suspect]
     Indication: ARTHRITIS
     Dosage: 200 MG, 1X/DAY
  3. CADUET [Suspect]
     Indication: HYPERTENSION
     Dosage: 10/20 MG, 1X/DAY
  4. ZOLOFT [Suspect]
     Indication: DEPRESSION
     Dosage: UNK, 1X/DAY
     Dates: start: 2011
  5. HYDROCHLOROTHIAZIDE [Concomitant]
     Indication: HYPERTENSION
     Dosage: 25 MG, 1X/DAY

REACTIONS (2)
  - Respiratory tract congestion [Recovering/Resolving]
  - Sinusitis [Recovering/Resolving]
